FAERS Safety Report 9563397 (Version 1)
Quarter: 2013Q1

REPORT INFORMATION
  Report Type: Spontaneous
  Country: US (occurrence: None)
  Receive Date: 20121218
  Receipt Date: 20121218
  Transmission Date: 20140127
  Serious: Yes (Other)
  Sender: FDA-Public Use
  Company Number: PHEH2012US007843

PATIENT
  Age: 64 Year
  Sex: Female

DRUGS (1)
  1. ZOMETA (ZOLEDRONATE) UNKNOWN [Suspect]
     Dosage: 4 MG, QMO
     Dates: end: 201111

REACTIONS (2)
  - Neoplasm progression [None]
  - Neoplasm malignant [None]
